FAERS Safety Report 7038261-5 (Version None)
Quarter: 2010Q4

REPORT INFORMATION
  Report Type: 
  Country: None (occurrence: None)
  Receive Date: 20101011
  Receipt Date: 20091030
  Transmission Date: 20110411
  Serious: No
  Sender: FDA-Public Use
  Company Number: US-PFIZER INC-2009268247

PATIENT
  Sex: Male
  Weight: 70.3 kg

DRUGS (5)
  1. NEURONTIN [Suspect]
     Indication: PAIN IN EXTREMITY
     Dosage: 300 MG, 3X/DAY
     Route: 048
  2. NEURONTIN [Suspect]
     Indication: NEURALGIA
  3. EFFEXOR [Concomitant]
     Indication: DEPRESSION
     Dosage: UNK
  4. METHADONE [Concomitant]
     Dosage: UNK
  5. OXYCODONE [Concomitant]
     Dosage: UNK

REACTIONS (1)
  - PAIN [None]
